FAERS Safety Report 13550332 (Version 1)
Quarter: 2017Q2

REPORT INFORMATION
  Report Type: Spontaneous
  Country: US (occurrence: US)
  Receive Date: 20170516
  Receipt Date: 20170516
  Transmission Date: 20170830
  Serious: No
  Sender: FDA-Public Use
  Company Number: US-BAYER-2017-092319

PATIENT
  Age: 69 Year
  Sex: Female
  Weight: 55.96 kg

DRUGS (2)
  1. ATENOLOL. [Concomitant]
     Active Substance: ATENOLOL
  2. ALEVE [Suspect]
     Active Substance: NAPROXEN SODIUM
     Indication: INFLAMMATION
     Dosage: 1 DF, UNK PER DAY FOR THE LAST 5 DAYS.
     Route: 048

REACTIONS (1)
  - Product use in unapproved indication [Unknown]
